FAERS Safety Report 16708912 (Version 3)
Quarter: 2025Q1

REPORT INFORMATION
  Report Type: Report from Study
  Country: GB (occurrence: GB)
  Receive Date: 20190816
  Receipt Date: 20250313
  Transmission Date: 20250409
  Serious: Yes (Other)
  Sender: ROCHE
  Company Number: GB-JNJFOC-20190724041

PATIENT
  Age: 43 Year
  Sex: Female

DRUGS (5)
  1. RITUXIMAB [Suspect]
     Active Substance: RITUXIMAB
     Indication: Rheumatoid arthritis
     Dosage: 2X1G INFUSIONS SIX-MONTHLY
     Route: 065
     Dates: start: 201608
  2. PREDNISOLONE [Suspect]
     Active Substance: PREDNISOLONE
     Indication: Rheumatoid arthritis
     Route: 065
     Dates: start: 201608
  3. GOLIMUMAB [Suspect]
     Active Substance: GOLIMUMAB
     Indication: Rheumatoid arthritis
     Route: 058
  4. METHOTREXATE [Suspect]
     Active Substance: METHOTREXATE
     Indication: Rheumatoid arthritis
     Route: 065
     Dates: start: 201608
  5. METHOTREXATE [Suspect]
     Active Substance: METHOTREXATE
     Route: 065

REACTIONS (5)
  - Quadrantanopia [Not Recovered/Not Resolved]
  - Cerebral toxoplasmosis [Recovering/Resolving]
  - Cerebral infarction [Unknown]
  - Tuberculosis [Unknown]
  - Hemianopia homonymous [Not Recovered/Not Resolved]
